FAERS Safety Report 5923752-8 (Version None)
Quarter: 2008Q4

REPORT INFORMATION
  Report Type: 
  Country: None (occurrence: None)
  Receive Date: 20081015
  Receipt Date: 20081002
  Transmission Date: 20090506
  Serious: Yes (Hospitalization)
  Sender: FDA-Public Use
  Company Number: 230006K08GBR

PATIENT
  Sex: Male

DRUGS (1)
  1. REBIF [Suspect]
     Dosage: 3 IN 1 WEEKS
     Dates: end: 20080101

REACTIONS (2)
  - ADVERSE EVENT [None]
  - IMMOBILE [None]
